FAERS Safety Report 15497657 (Version 1)
Quarter: 2018Q4

REPORT INFORMATION
  Report Type: Spontaneous
  Country: CA (occurrence: CA)
  Receive Date: 20181005
  Receipt Date: 20181005
  Transmission Date: 20190205
  Serious: Yes (Other)
  Sender: FDA-Public Use
  Company Number: None

PATIENT
  Age: 75 Year
  Sex: Female
  Weight: 56.7 kg

DRUGS (11)
  1. PROBIOTIC ALIGN [Concomitant]
  2. ESTRADIOL. [Suspect]
     Active Substance: ESTRADIOL
  3. CHEMO [Concomitant]
     Active Substance: UNSPECIFIED INGREDIENT
  4. RADIATION [Concomitant]
     Active Substance: RADIATION THERAPY
  5. APREPITANT. [Concomitant]
     Active Substance: APREPITANT
  6. EMEND [Concomitant]
     Active Substance: APREPITANT
  7. PREMARIN [Suspect]
     Active Substance: ESTROGENS, CONJUGATED
  8. TESTOSTERONE VERSABASE CREAM [Suspect]
     Active Substance: TESTOSTERONE
     Dates: start: 20100311, end: 20170405
  9. KRILL OIL [Concomitant]
     Active Substance: DIETARY SUPPLEMENT
  10. DEXAMETHASON [Concomitant]
     Active Substance: DEXAMETHASONE
  11. VITAMINS [Concomitant]
     Active Substance: VITAMINS

REACTIONS (1)
  - Breast cancer [None]

NARRATIVE: CASE EVENT DATE: 20170311
